FAERS Safety Report 21134682 (Version 1)
Quarter: 2022Q3

REPORT INFORMATION
  Report Type: Spontaneous
  Country: JP (occurrence: JP)
  Receive Date: 20220727
  Receipt Date: 20220727
  Transmission Date: 20221026
  Serious: Yes (Other)
  Sender: FDA-Public Use
  Company Number: JP-SUN PHARMACEUTICAL INDUSTRIES LTD-2022RR-340133

PATIENT
  Age: 69 Year
  Sex: Male

DRUGS (3)
  1. OXALIPLATIN [Suspect]
     Active Substance: OXALIPLATIN
     Indication: Colorectal cancer
     Dosage: 42 MILLIGRAM/SQ. METER, 2H, 1DOSE/4WEEKS
     Route: 065
  2. LEUCOVORIN CALCIUM [Suspect]
     Active Substance: LEUCOVORIN CALCIUM
     Indication: Colorectal cancer
     Dosage: 100 MILLIGRAM/SQ. METER, 2H, 1DOSE/4WEEKS
     Route: 065
  3. FLUOROURACIL [Suspect]
     Active Substance: FLUOROURACIL
     Indication: Colorectal cancer
     Dosage: 1200 MILLIGRAM/SQ. METER, 46H,  1DOSE/4WEEKS
     Route: 040

REACTIONS (2)
  - Hyperammonaemic encephalopathy [Recovering/Resolving]
  - Depressed level of consciousness [Recovering/Resolving]
